FAERS Safety Report 25082699 (Version 5)
Quarter: 2025Q3

REPORT INFORMATION
  Report Type: Spontaneous
  Country: US (occurrence: US)
  Receive Date: 20250317
  Receipt Date: 20250915
  Transmission Date: 20251020
  Serious: Yes (Hospitalization, Other)
  Sender: GLENMARK
  Company Number: US-GLENMARK PHARMACEUTICALS-2025GMK098643

PATIENT

DRUGS (9)
  1. CARVEDILOL [Suspect]
     Active Substance: CARVEDILOL
     Indication: Blood pressure abnormal
     Dosage: 25 MILLIGRAM, BID
     Route: 048
     Dates: start: 2018
  2. CARVEDILOL [Suspect]
     Active Substance: CARVEDILOL
     Indication: Myocardial infarction
     Dosage: 2 DOSAGE FORM, QD (2 TABLETS A DAY)
     Route: 048
     Dates: start: 20250227
  3. CARVEDILOL [Suspect]
     Active Substance: CARVEDILOL
     Route: 048
     Dates: start: 202505
  4. ALBUTEROL [Concomitant]
     Active Substance: ALBUTEROL
     Indication: Product used for unknown indication
  5. AMLODIPINE [Concomitant]
     Active Substance: AMLODIPINE BESYLATE
     Indication: Product used for unknown indication
     Route: 065
  6. VALSARTAN [Concomitant]
     Active Substance: VALSARTAN
     Indication: Product used for unknown indication
     Route: 065
  7. ASPIRIN [Concomitant]
     Active Substance: ASPIRIN
     Indication: Product used for unknown indication
     Route: 065
  8. CLONIDINE [Concomitant]
     Active Substance: CLONIDINE
     Indication: Product used for unknown indication
     Route: 065
  9. LOSARTAN [Concomitant]
     Active Substance: LOSARTAN
     Indication: Blood pressure abnormal
     Route: 065

REACTIONS (8)
  - Angina pectoris [Unknown]
  - Hypertension [Unknown]
  - Drug ineffective [Unknown]
  - Suspected product quality issue [Unknown]
  - Recalled product administered [Unknown]
  - Product container seal issue [Unknown]
  - Wrong technique in product usage process [Unknown]
  - Product commingling [Unknown]
